FAERS Safety Report 6779691-6 (Version None)
Quarter: 2010Q2

REPORT INFORMATION
  Report Type: 
  Country: None (occurrence: None)
  Receive Date: 20100618
  Receipt Date: 20100611
  Transmission Date: 20101027
  Serious: Yes (Other)
  Sender: FDA-Public Use
  Company Number: NO-PFIZER INC-2010073868

PATIENT
  Age: 35 Year
  Sex: Male

DRUGS (3)
  1. METHYLPREDNISOLONE [Suspect]
  2. ACYCLOVIR [Suspect]
     Indication: PROGRESSIVE MULTIFOCAL LEUKOENCEPHALOPATHY
     Route: 065
  3. CEFTRIAXONE [Suspect]
     Indication: PROGRESSIVE MULTIFOCAL LEUKOENCEPHALOPATHY

REACTIONS (5)
  - APHASIA [None]
  - CONDITION AGGRAVATED [None]
  - IMMUNE RECONSTITUTION SYNDROME [None]
  - MONOPARESIS [None]
  - VISUAL IMPAIRMENT [None]
